FAERS Safety Report 19021625 (Version 1)
Quarter: 2021Q1

REPORT INFORMATION
  Report Type: Spontaneous
  Country: US (occurrence: US)
  Receive Date: 20210317
  Receipt Date: 20210317
  Transmission Date: 20210420
  Serious: No
  Sender: FDA-Public Use
  Company Number: US-GLAXOSMITHKLINE-USCH2021012892

PATIENT
  Age: 72 Year
  Sex: Female

DRUGS (2)
  1. ADVIL (DIPHENHYDRAMINE + IBUPROFEN) [Suspect]
     Active Substance: DIPHENHYDRAMINE\IBUPROFEN
     Indication: PAIN
     Dosage: 12 DF, 1D
  2. ADVIL (DIPHENHYDRAMINE + IBUPROFEN) [Suspect]
     Active Substance: DIPHENHYDRAMINE\IBUPROFEN

REACTIONS (4)
  - Off label use [Unknown]
  - Erythema [Unknown]
  - Overdose [Unknown]
  - Rash [Unknown]
